FAERS Safety Report 7417568-3 (Version None)
Quarter: 2011Q2

REPORT INFORMATION
  Report Type: 
  Country: None (occurrence: None)
  Receive Date: 20110412
  Receipt Date: 20110412
  Transmission Date: 20111010
  Serious: Yes (Life-Threatening)
  Sender: FDA-Public Use
  Company Number: None

PATIENT
  Age: 63 Year
  Sex: Female
  Weight: 104.3273 kg

DRUGS (2)
  1. PAROXETINE HCL EXTENDED RELEASE [Suspect]
     Indication: PANIC ATTACK
     Dosage: 1 TABLET DAILY PO
     Route: 048
     Dates: start: 20110130, end: 20110325
  2. PAROXETINE HCL EXTENDED RELEASE [Suspect]
     Indication: ANXIETY
     Dosage: 1 TABLET DAILY PO
     Route: 048
     Dates: start: 20110130, end: 20110325

REACTIONS (2)
  - ANXIETY [None]
  - TINNITUS [None]
